FAERS Safety Report 7688015-1 (Version None)
Quarter: 2011Q3

REPORT INFORMATION
  Report Type: 
  Country: None (occurrence: None)
  Receive Date: 20110817
  Receipt Date: 20110809
  Transmission Date: 20111222
  Serious: No
  Sender: FDA-Public Use
  Company Number: US-PFIZER INC-2011187835

PATIENT
  Sex: Male

DRUGS (9)
  1. LOPRESSOR [Suspect]
     Dosage: 100 MG, 2X/DAY
  2. ALISKIREN [Suspect]
  3. DIOVAN [Suspect]
  4. TICLID [Concomitant]
     Indication: HYPERTENSION
     Dosage: UNK
  5. DIOVAN HCT [Concomitant]
     Dosage: 320 MG, DAILY
  6. PROCARDIA [Suspect]
     Dosage: UNK
  7. JANUVIA [Concomitant]
     Indication: DIABETES MELLITUS
     Dosage: UNK
  8. INSULIN [Concomitant]
     Indication: DIABETES MELLITUS
     Dosage: UNK
  9. METFORMIN [Concomitant]
     Indication: DIABETES MELLITUS
     Dosage: UNK

REACTIONS (1)
  - DRUG INEFFECTIVE [None]
